FAERS Safety Report 4542238-9 (Version None)
Quarter: 2004Q4

REPORT INFORMATION
  Report Type: 
  Country: None (occurrence: None)
  Receive Date: 20041227
  Receipt Date: 20041213
  Transmission Date: 20050328
  Serious: Yes (Other)
  Sender: FDA-Public Use
  Company Number: HQWYE963914DEC04

PATIENT
  Age: 58 Year
  Sex: Male
  Weight: 86.26 kg

DRUGS (2)
  1. ADVIL [Suspect]
     Indication: GOUT
     Dosage: 1 TABLET 2X PER 1 DAY, ORAL
     Route: 048
     Dates: start: 20041101
  2. UNSPECIFIED ANTINEOPLASTIC AGENT (UNSPECIFIED ANTINEOPLASTIC AGENT) [Concomitant]

REACTIONS (1)
  - PLATELET COUNT DECREASED [None]
